FAERS Safety Report 5483463-2 (Version None)
Quarter: 2007Q4

REPORT INFORMATION
  Report Type: 
  Country: None (occurrence: None)
  Receive Date: 20071012
  Receipt Date: 20071001
  Transmission Date: 20080405
  Serious: Yes (Death, Hospitalization)
  Sender: FDA-Public Use
  Company Number: NO-BRISTOL-MYERS SQUIBB COMPANY-13931852

PATIENT
  Age: 60 Year
  Sex: Male

DRUGS (2)
  1. METFORMIN HCL [Suspect]
     Indication: TYPE 2 DIABETES MELLITUS
     Dosage: PATIENT USED VARIABLE AND HIGHER DOSAGE, UPTO 1 G TWICE A DAY.
     Route: 048
  2. ALBYL-E [Concomitant]
     Route: 048

REACTIONS (3)
  - ACUTE ABDOMEN [None]
  - CARDIAC ARREST [None]
  - LACTIC ACIDOSIS [None]
